FAERS Safety Report 17742092 (Version 1)
Quarter: 2020Q2

REPORT INFORMATION
  Report Type: Spontaneous
  Country: CA (occurrence: CA)
  Receive Date: 20200504
  Receipt Date: 20200504
  Transmission Date: 20200714
  Serious: Yes (Life-Threatening, Hospitalization, Other)
  Sender: FDA-Public Use
  Company Number: NVSC2020CA118886

PATIENT
  Age: 51 Year
  Sex: Male

DRUGS (23)
  1. CALCIUM [Suspect]
     Active Substance: CALCIUM
     Indication: OVERDOSE
     Dosage: UNK
     Route: 065
  2. GLUCAGON. [Suspect]
     Active Substance: GLUCAGON
     Indication: OVERDOSE
     Dosage: 5.0 MG
     Route: 065
  3. GLUCOSE [Suspect]
     Active Substance: DEXTROSE
     Indication: OVERDOSE
     Dosage: UNK
     Route: 065
  4. L-ASPARTIC ACID [Suspect]
     Active Substance: ASPARTIC ACID
     Indication: OVERDOSE
     Dosage: UNK
     Route: 065
  5. VERAPAMIL HYDROCHLORIDE. [Suspect]
     Active Substance: VERAPAMIL HYDROCHLORIDE
     Indication: OVERDOSE
     Dosage: 19.2 G
     Route: 065
  6. POTASSIUM CHLORIDE. [Suspect]
     Active Substance: POTASSIUM CHLORIDE
     Indication: OVERDOSE
     Dosage: UNK
     Route: 065
  7. MAGNESIUM CHLORIDE ANHYDROUS [Suspect]
     Active Substance: MAGNESIUM CHLORIDE ANHYDROUS
     Indication: OVERDOSE
     Dosage: UNK
     Route: 065
  8. THREONINE [Suspect]
     Active Substance: THREONINE
     Indication: OVERDOSE
     Dosage: UNK
     Route: 065
  9. ATROPINE SULFATE INJECTION USP [Suspect]
     Active Substance: ATROPINE SULFATE
     Indication: OVERDOSE
     Dosage: UNK
     Route: 065
  10. VALINE [Suspect]
     Active Substance: VALINE
     Indication: OVERDOSE
     Dosage: UNK
     Route: 065
  11. DIPHENHYDRAMINE. [Suspect]
     Active Substance: DIPHENHYDRAMINE
     Indication: OVERDOSE
     Dosage: 200.0 MG
     Route: 048
  12. ACTIVATED CHARCOAL. [Suspect]
     Active Substance: ACTIVATED CHARCOAL
     Indication: OVERDOSE
     Dosage: UNK
     Route: 065
  13. LYSINE [Suspect]
     Active Substance: LYSINE
     Indication: OVERDOSE
     Dosage: UNK
     Route: 065
  14. PHENYLALANINE [Suspect]
     Active Substance: PHENYLALANINE
     Indication: OVERDOSE
     Dosage: UNK
     Route: 065
  15. EPINEPHRINE. [Suspect]
     Active Substance: EPINEPHRINE
     Indication: OVERDOSE
     Dosage: UNK
     Route: 065
  16. GLUTAMIC ACID [Suspect]
     Active Substance: GLUTAMIC ACID
     Indication: OVERDOSE
     Dosage: UNK
     Route: 065
  17. PROLINE [Suspect]
     Active Substance: PROLINE
     Indication: OVERDOSE
     Dosage: UNK
     Route: 065
  18. NOREPINEPHRINE. [Suspect]
     Active Substance: NOREPINEPHRINE
     Indication: OVERDOSE
     Dosage: UNK
     Route: 065
  19. APO-VERAP [Suspect]
     Active Substance: VERAPAMIL HYDROCHLORIDE
     Indication: PRODUCT USED FOR UNKNOWN INDICATION
     Dosage: 19.2 G
     Route: 048
  20. METHYLENE BLUE. [Suspect]
     Active Substance: METHYLENE BLUE
     Indication: OVERDOSE
     Dosage: 80.0 MG
     Route: 065
  21. HISTIDINE [Suspect]
     Active Substance: HISTIDINE
     Indication: OVERDOSE
     Dosage: UNK
     Route: 065
  22. VASOPRESSIN. [Suspect]
     Active Substance: VASOPRESSIN
     Indication: OVERDOSE
     Dosage: UNK
     Route: 065
  23. GLYCINE. [Suspect]
     Active Substance: GLYCINE
     Indication: OVERDOSE
     Dosage: UNK
     Route: 065

REACTIONS (14)
  - Ileus [Recovered/Resolved]
  - Overdose [Recovered/Resolved]
  - Cardiogenic shock [Recovered/Resolved]
  - Condition aggravated [Recovered/Resolved]
  - Bradycardia [Recovered/Resolved]
  - Hyperkalaemia [Recovered/Resolved]
  - Hypotension [Recovered/Resolved]
  - Coma scale abnormal [Recovered/Resolved]
  - Cardiac arrest [Recovered/Resolved]
  - Rhabdomyolysis [Recovered/Resolved]
  - Vasoplegia syndrome [Recovered/Resolved]
  - Compartment syndrome [Recovered/Resolved]
  - Lactic acidosis [Recovered/Resolved]
  - Pulse absent [Recovered/Resolved]
